FAERS Safety Report 8249183-6 (Version None)
Quarter: 2012Q1

REPORT INFORMATION
  Report Type: 
  Country: None (occurrence: None)
  Receive Date: 20120328
  Receipt Date: 20120315
  Transmission Date: 20120608
  Serious: Yes (Hospitalization, Disabling, Other)
  Sender: FDA-Public Use
  Company Number: 2010AL002563

PATIENT
  Sex: Female
  Weight: 64.4108 kg

DRUGS (112)
  1. ATIVAN [Concomitant]
  2. AVELOX [Concomitant]
  3. CLARINEX [Concomitant]
  4. FOSAMAX [Concomitant]
  5. HYDROCODONE BITARTRATE AND ACETAMINOPHEN [Concomitant]
  6. LISINOPRIL [Concomitant]
  7. M.V.I. [Concomitant]
  8. PLAVIX [Concomitant]
  9. DARVOCET-N 50 [Concomitant]
  10. TEQUIN [Concomitant]
  11. TRIAMTERENE AND HYDROCHLOROTHIAZIDE [Concomitant]
  12. ULTRACET [Concomitant]
  13. VITAIN E [Concomitant]
  14. WELLBUTRIN [Concomitant]
  15. ZITHROMAX [Concomitant]
  16. ZYBAN [Concomitant]
  17. ACTONEL [Concomitant]
  18. AZITHROMYCIN [Concomitant]
  19. BIAXIN XL [Concomitant]
  20. BONIVA [Concomitant]
  21. CHANTIX [Concomitant]
  22. CLONAZEPAM [Concomitant]
  23. IRON [Concomitant]
  24. POTASSIUM CHLORIDE [Concomitant]
  25. PAXIL [Concomitant]
  26. POTASSIUM [Concomitant]
  27. SPIRIVA [Concomitant]
  28. ZESTRIL [Concomitant]
  29. ACETYLCYSTEINE [Concomitant]
  30. CALCIUM 600 + D [Concomitant]
  31. CIPROFLOXACIN [Concomitant]
  32. FAMOTIDINE [Concomitant]
  33. FEXOFENADINE [Concomitant]
  34. MIACALCIN [Concomitant]
  35. NASONEX [Concomitant]
  36. NICOTINE [Concomitant]
  37. PREDNISONE TAB [Concomitant]
  38. PROAIR HFA [Concomitant]
  39. SODIUM POLYSTYRENE [Concomitant]
  40. TRAMADOL HCL [Concomitant]
  41. ASCORBIC ACID [Concomitant]
  42. ACETAMINOPHEN [Concomitant]
  43. COMPAZINE [Concomitant]
  44. DEXAMETHASONE [Concomitant]
  45. ENALAPRIL [Concomitant]
  46. ENALAPRIL MALEATE AND HYDROCHLOROTHIAZIDE [Concomitant]
  47. ENSURE [Concomitant]
  48. EXCEDRIN (MIGRAINE) [Concomitant]
  49. FERROUS SULFATE TAB [Concomitant]
  50. POTASSIUM CHLORIDE [Concomitant]
  51. PANTOPRAZOLE [Concomitant]
  52. PRILOSEC [Concomitant]
  53. VASERETIC [Concomitant]
  54. ADVAIR DISKUS 100/50 [Concomitant]
  55. ALPRAZOLAM [Concomitant]
  56. ASPIRIN [Concomitant]
  57. AUGMENTIN '125' [Concomitant]
  58. CALCIUM CARBONATE [Concomitant]
  59. DILTIAZEM [Concomitant]
  60. FUROSEMIDE [Concomitant]
  61. LIDOCAINE/MAALOX [Concomitant]
  62. MIRALAX [Concomitant]
  63. NAPROXEN [Concomitant]
  64. PHENERGAN EXPECTORANT W/ CODEINE [Concomitant]
  65. SERZONE [Concomitant]
  66. SILVADENE [Concomitant]
  67. TEMAZEPAM [Concomitant]
  68. TIGAN [Concomitant]
  69. METOCLOPRAMIDE [Suspect]
     Indication: BARRETT'S OESOPHAGUS
     Dosage: 10 MG;QID;PO
     Route: 048
     Dates: start: 20010722, end: 20080726
  70. METOCLOPRAMIDE [Suspect]
     Indication: GASTROOESOPHAGEAL REFLUX DISEASE
     Dosage: 10 MG;QID;PO
     Route: 048
     Dates: start: 20010722, end: 20080726
  71. ATENOLOL [Concomitant]
  72. CILOSTAZOL [Concomitant]
  73. FLONASE [Concomitant]
  74. HYZAAR [Concomitant]
  75. MORPHINE [Concomitant]
  76. MYLANTA [Concomitant]
  77. ZITHROMAX [Concomitant]
  78. ACETAMINOPHEN [Concomitant]
  79. ALLEGRA-D 12 HOUR [Concomitant]
  80. ALTACE [Concomitant]
  81. CARDIZEM SR [Concomitant]
  82. CLARITIN [Concomitant]
  83. CLOPIDOGREL [Concomitant]
  84. COMBIVENT [Concomitant]
  85. DOCUSATE SODIUM [Concomitant]
  86. KLOR-CON [Concomitant]
  87. LIPITOR [Concomitant]
  88. METOPROLOL TARTRATE [Concomitant]
  89. MYTUSSIN [Concomitant]
  90. NYSTATIN [Concomitant]
  91. PREVACID [Concomitant]
  92. RANITIDINE [Concomitant]
  93. VASERETIC [Concomitant]
  94. VASOTEC [Concomitant]
  95. ZINC SULFATE [Concomitant]
  96. ALBUTEROL [Concomitant]
  97. ASTELIN [Concomitant]
  98. ATORVASTATIN [Concomitant]
  99. BELLADONNA ALKALOIDS WITH PHENOBARBITA [Concomitant]
  100. BOOST [Concomitant]
  101. CARAFATE [Concomitant]
  102. CHERATUSSIN AC [Concomitant]
  103. COLACE [Concomitant]
  104. KEFLEX [Concomitant]
  105. LIDOCAINE [Concomitant]
  106. LOPRESSOR [Concomitant]
  107. LORAZEPAM [Concomitant]
  108. METRONIDAZOLE [Concomitant]
  109. MILK OF MAGNESIA TAB [Concomitant]
  110. TRIMETHOPRIM [Concomitant]
  111. TRIMETHOBENZAMIDE HCL [Concomitant]
  112. ZOLOFT [Concomitant]

REACTIONS (166)
  - NERVOUS SYSTEM DISORDER [None]
  - MENTAL DISORDER [None]
  - ANHEDONIA [None]
  - OROPHARYNGEAL PAIN [None]
  - COUGH [None]
  - DYSPNOEA [None]
  - HEADACHE [None]
  - NAUSEA [None]
  - LIMB INJURY [None]
  - ADRENAL ADENOMA [None]
  - BACK PAIN [None]
  - ILIAC ARTERY STENOSIS [None]
  - OESOPHAGEAL PAIN [None]
  - PALPITATIONS [None]
  - DIARRHOEA [None]
  - PEPTIC ULCER [None]
  - ASTHENIA [None]
  - HYPOKALAEMIA [None]
  - OESOPHAGITIS ULCERATIVE [None]
  - MALNUTRITION [None]
  - SCAR [None]
  - ERYTHEMA [None]
  - ELECTROCARDIOGRAM ST-T CHANGE [None]
  - RENAL ARTERY ARTERIOSCLEROSIS [None]
  - METAPLASIA [None]
  - REGURGITATION [None]
  - HYPOPHAGIA [None]
  - FATIGUE [None]
  - ABDOMINAL DISCOMFORT [None]
  - SINUS CONGESTION [None]
  - CHEST DISCOMFORT [None]
  - JOINT DISLOCATION [None]
  - INCISION SITE ERYTHEMA [None]
  - MUSCULOSKELETAL PAIN [None]
  - WOUND INFECTION STAPHYLOCOCCAL [None]
  - OCCULT BLOOD POSITIVE [None]
  - URINARY TRACT INFECTION [None]
  - SMALL INTESTINAL STENOSIS [None]
  - INTERVERTEBRAL DISC PROTRUSION [None]
  - CORONARY ARTERY DISEASE [None]
  - CEREBRAL SMALL VESSEL ISCHAEMIC DISEASE [None]
  - RENAL CYST [None]
  - IMPAIRED GASTRIC EMPTYING [None]
  - FEMORAL ARTERIAL STENOSIS [None]
  - PATHOLOGICAL FRACTURE [None]
  - EXTRAPYRAMIDAL DISORDER [None]
  - ABDOMINAL PAIN UPPER [None]
  - VOMITING [None]
  - INTERMITTENT CLAUDICATION [None]
  - FOOD INTOLERANCE [None]
  - SKIN LESION [None]
  - PANIC ATTACK [None]
  - POSTOPERATIVE WOUND INFECTION [None]
  - KYPHOSIS [None]
  - PHARYNGEAL ERYTHEMA [None]
  - OSTEOPOROSIS [None]
  - BALANCE DISORDER [None]
  - FAECAL INCONTINENCE [None]
  - CONVULSION [None]
  - ENCEPHALOPATHY [None]
  - EROSIVE OESOPHAGITIS [None]
  - HYPONATRAEMIA [None]
  - CHOLELITHIASIS [None]
  - METASTASES TO ADRENALS [None]
  - ACTIVITIES OF DAILY LIVING IMPAIRED [None]
  - TARDIVE DYSKINESIA [None]
  - PNEUMONIA ASPIRATION [None]
  - MALAISE [None]
  - SKELETAL INJURY [None]
  - MUSCULOSKELETAL STIFFNESS [None]
  - STRESS [None]
  - ULNA FRACTURE [None]
  - PHAEOCHROMOCYTOMA [None]
  - PARAESTHESIA [None]
  - GASTRIC ULCER [None]
  - SINUSITIS [None]
  - RHINITIS ALLERGIC [None]
  - LEG AMPUTATION [None]
  - CONFUSIONAL STATE [None]
  - HIATUS HERNIA [None]
  - HAEMANGIOMA OF LIVER [None]
  - ADRENAL MASS [None]
  - CONDITION AGGRAVATED [None]
  - ECONOMIC PROBLEM [None]
  - NASAL CONGESTION [None]
  - THROAT IRRITATION [None]
  - ANXIETY [None]
  - LOBAR PNEUMONIA [None]
  - MUSCULAR WEAKNESS [None]
  - DYSPHAGIA [None]
  - GASTROOESOPHAGEAL REFLUX DISEASE [None]
  - PAIN IN EXTREMITY [None]
  - CONSTIPATION [None]
  - RADIUS FRACTURE [None]
  - DECREASED APPETITE [None]
  - CERUMEN IMPACTION [None]
  - SPINAL COMPRESSION FRACTURE [None]
  - CARPAL TUNNEL SYNDROME [None]
  - MALIGNANT HYPERTENSION [None]
  - ANASTOMOTIC STENOSIS [None]
  - LACERATION [None]
  - PERIPHERAL ISCHAEMIA [None]
  - DYSPEPSIA [None]
  - ANASTOMOTIC ULCER [None]
  - INTERVERTEBRAL DISC DISORDER [None]
  - DYSTONIA [None]
  - DEHYDRATION [None]
  - BONE NEOPLASM [None]
  - DEFORMITY [None]
  - MULTIPLE INJURIES [None]
  - DROOLING [None]
  - ARTERIAL DISORDER [None]
  - PARKINSON'S DISEASE [None]
  - OESOPHAGITIS [None]
  - INCREASED TENDENCY TO BRUISE [None]
  - BONE LESION [None]
  - ODYNOPHAGIA [None]
  - METANEPHRINE URINE INCREASED [None]
  - PERIPHERAL ARTERIAL OCCLUSIVE DISEASE [None]
  - TREMOR [None]
  - EARLY SATIETY [None]
  - PRESYNCOPE [None]
  - REFLUX GASTRITIS [None]
  - HAEMORRHOIDS [None]
  - FREQUENT BOWEL MOVEMENTS [None]
  - FACE INJURY [None]
  - SPINAL COLUMN STENOSIS [None]
  - CANDIDIASIS [None]
  - EXOSTOSIS [None]
  - EMOTIONAL DISTRESS [None]
  - WEIGHT DECREASED [None]
  - NECK MASS [None]
  - PARATRACHEAL LYMPHADENOPATHY [None]
  - FALL [None]
  - RENAL ARTERY STENOSIS [None]
  - EPIGASTRIC DISCOMFORT [None]
  - NASOPHARYNGITIS [None]
  - HYPOAESTHESIA [None]
  - BONE PAIN [None]
  - RHINORRHOEA [None]
  - OESOPHAGEAL STENOSIS [None]
  - HEPATIC LESION [None]
  - SPINAL OSTEOARTHRITIS [None]
  - PAIN [None]
  - DYSARTHRIA [None]
  - SENSATION OF FOREIGN BODY [None]
  - ORAL PRURITUS [None]
  - OBSTRUCTION GASTRIC [None]
  - LIP NEOPLASM MALIGNANT STAGE UNSPECIFIED [None]
  - GASTRIC DILATATION [None]
  - CHEST PAIN [None]
  - HYPERVENTILATION [None]
  - FRACTURE NONUNION [None]
  - DIZZINESS [None]
  - UPPER RESPIRATORY TRACT INFECTION [None]
  - GRANULOMA SKIN [None]
  - CHOLECYSTITIS ACUTE [None]
  - CHRONIC OBSTRUCTIVE PULMONARY DISEASE [None]
  - AREFLEXIA [None]
  - VASCULAR GRAFT THROMBOSIS [None]
  - DIVERTICULUM [None]
  - BILE DUCT OBSTRUCTION [None]
  - WOUND ABSCESS [None]
  - HEPATIC CYST [None]
  - VERTEBRAL FORAMINAL STENOSIS [None]
  - PYLORIC STENOSIS [None]
